FAERS Safety Report 10769575 (Version 1)
Quarter: 2015Q1

REPORT INFORMATION
  Report Type: Spontaneous
  Country: US (occurrence: US)
  Receive Date: 20150206
  Receipt Date: 20150206
  Transmission Date: 20150721
  Serious: No
  Sender: FDA-Public Use
  Company Number: US-TEVA-538396USA

PATIENT
  Sex: Male

DRUGS (1)
  1. COPAXONE [Suspect]
     Active Substance: GLATIRAMER ACETATE

REACTIONS (7)
  - Swollen tongue [Unknown]
  - Dyspnoea [Unknown]
  - Adverse drug reaction [Unknown]
  - Cyanosis [Unknown]
  - Panic attack [Unknown]
  - Paraesthesia [Unknown]
  - Paraesthesia oral [Unknown]
